FAERS Safety Report 7623072-X (Version None)
Quarter: 2011Q3

REPORT INFORMATION
  Report Type: 
  Country: None (occurrence: None)
  Receive Date: 20110720
  Receipt Date: 20110706
  Transmission Date: 20111222
  Serious: Yes (Hospitalization)
  Sender: FDA-Public Use
  Company Number: US-AMGEN-USASP2011026858

PATIENT
  Age: 61 Year
  Sex: Female

DRUGS (1)
  1. ENBREL [Suspect]
     Indication: RHEUMATOID ARTHRITIS
     Dosage: 50 MG, QWK
     Dates: start: 20090101

REACTIONS (4)
  - CERVICAL SPINAL STENOSIS [None]
  - BLISTER [None]
  - JOINT DISLOCATION POSTOPERATIVE [None]
  - STREPTOCOCCAL INFECTION [None]
